FAERS Safety Report 8985941 (Version 5)
Quarter: 2013Q1

REPORT INFORMATION
  Report Type: Spontaneous
  Country: IE (occurrence: IE)
  Receive Date: 20121226
  Receipt Date: 20130304
  Transmission Date: 20140127
  Serious: Yes (Other)
  Sender: FDA-Public Use
  Company Number: IE-PFIZER INC-2012323107

PATIENT
  Age: 69 Year
  Sex: Male

DRUGS (5)
  1. CORDARONE [Suspect]
     Indication: ATRIAL FIBRILLATION
     Dosage: 200 MG, DAILY
     Route: 048
     Dates: start: 2009, end: 201211
  2. PLAVIX [Suspect]
     Indication: ATRIAL FIBRILLATION
     Dosage: 75 MG, DAILY
     Route: 065
  3. PLAVIX [Suspect]
     Indication: ANTICOAGULANT THERAPY
  4. CALCICHEW D3 [Concomitant]
     Indication: PROPHYLAXIS
     Dosage: UNK
  5. PROPAFENONE [Concomitant]
     Dosage: UNK

REACTIONS (3)
  - Myopathy [Recovering/Resolving]
  - Muscle atrophy [Recovering/Resolving]
  - Muscular weakness [Recovering/Resolving]
